FAERS Safety Report 11009645 (Version 1)
Quarter: 2015Q2

REPORT INFORMATION
  Report Type: Spontaneous
  Country: US (occurrence: US)
  Receive Date: 20150410
  Receipt Date: 20150410
  Transmission Date: 20150821
  Serious: Yes (Other)
  Sender: FDA-Public Use
  Company Number: US-BEH-2014045565

PATIENT
  Sex: Female
  Weight: 98 kg

DRUGS (1)
  1. RHOPHYLAC [Suspect]
     Active Substance: HUMAN RHO(D) IMMUNE GLOBULIN
     Dosage: ??-DEC-2013; GIVEN AT 30 WEEKS GESTATION

REACTIONS (1)
  - Drug ineffective [Unknown]
